FAERS Safety Report 13234392 (Version 1)
Quarter: 2017Q1

REPORT INFORMATION
  Report Type: Spontaneous
  Country: US (occurrence: US)
  Receive Date: 20170214
  Receipt Date: 20170214
  Transmission Date: 20170428
  Serious: No
  Sender: FDA-Public Use
  Company Number: None

PATIENT
  Age: 56 Year
  Sex: Female

DRUGS (1)
  1. HUMIRA [Suspect]
     Active Substance: ADALIMUMAB
     Indication: PRODUCT USED FOR UNKNOWN INDICATION
     Dosage: 1 PEN
     Route: 058
     Dates: start: 20151212

REACTIONS (4)
  - Headache [None]
  - Onychoclasis [None]
  - Sinus disorder [None]
  - Diarrhoea [None]

NARRATIVE: CASE EVENT DATE: 20161215
